FAERS Safety Report 25682723 (Version 1)
Quarter: 2025Q3

REPORT INFORMATION
  Report Type: Spontaneous
  Country: US (occurrence: EU)
  Receive Date: 20250814
  Receipt Date: 20250814
  Transmission Date: 20251020
  Serious: Yes (Death, Congenital Anomaly)
  Sender: OTSUKA
  Company Number: US-OTSUKA-2025_019787

PATIENT
  Age: 1 Day
  Sex: Male

DRUGS (2)
  1. ABILIFY MAINTENA [Suspect]
     Active Substance: ARIPIPRAZOLE
     Indication: Product used for unknown indication
     Route: 064
  2. ABILIFY [Suspect]
     Active Substance: ARIPIPRAZOLE
     Indication: Product used for unknown indication
     Route: 064

REACTIONS (4)
  - Endocardial fibrosis [Fatal]
  - Cardiac valve sclerosis [Fatal]
  - Ventricular hypokinesia [Fatal]
  - Foetal exposure during pregnancy [Unknown]
